FAERS Safety Report 14092404 (Version 8)
Quarter: 2018Q4

REPORT INFORMATION
  Report Type: Spontaneous
  Country: JP (occurrence: JP)
  Receive Date: 20171016
  Receipt Date: 20181226
  Transmission Date: 20190204
  Serious: Yes (Hospitalization, Other)
  Sender: FDA-Public Use
  Company Number: JP-BRISTOL-MYERS SQUIBB COMPANY-BMS-2017-076475

PATIENT
  Age: 76 Year
  Sex: Male
  Weight: 60 kg

DRUGS (2)
  1. YERVOY [Suspect]
     Active Substance: IPILIMUMAB
     Indication: MALIGNANT MELANOMA
     Dosage: 3 MG/KG, UNK
     Route: 041
     Dates: start: 20170601, end: 20170803
  2. OPDIVO [Suspect]
     Active Substance: NIVOLUMAB
     Indication: MALIGNANT MELANOMA
     Dosage: 3 MG/KG, UNK
     Route: 041
     Dates: start: 20161110, end: 20170413

REACTIONS (12)
  - Ulcer [Unknown]
  - Neurogenic bladder [Unknown]
  - Polymyalgia rheumatica [Recovering/Resolving]
  - Ileus paralytic [Unknown]
  - Constipation [Not Recovered/Not Resolved]
  - Intestinal pseudo-obstruction [Unknown]
  - Thyroid disorder [Recovered/Resolved]
  - Ileus [Recovering/Resolving]
  - Cytomegalovirus enterocolitis [Unknown]
  - Renal disorder [Recovered/Resolved]
  - Malignant neoplasm progression [Unknown]
  - Colitis [Recovering/Resolving]

NARRATIVE: CASE EVENT DATE: 20170107
